FAERS Safety Report 4497399-7 (Version None)
Quarter: 2004Q4

REPORT INFORMATION
  Report Type: 
  Country: None (occurrence: None)
  Receive Date: 20041110
  Receipt Date: 20041006
  Transmission Date: 20050328
  Serious: No
  Sender: FDA-Public Use
  Company Number: 200413755FR

PATIENT
  Age: 34 Year
  Sex: Female

DRUGS (5)
  1. FLAGYL [Suspect]
  2. LYSANXIA [Concomitant]
  3. AVLOCARDYL [Concomitant]
  4. ECONAZOLE [Concomitant]
  5. COLPOTROPHINE [Concomitant]

REACTIONS (4)
  - ACCIDENTAL EXPOSURE [None]
  - HOLMES-ADIE PUPIL [None]
  - HYPOREFLEXIA [None]
  - MYDRIASIS [None]
